FAERS Safety Report 7198136-8 (Version None)
Quarter: 2010Q4

REPORT INFORMATION
  Report Type: 
  Country: None (occurrence: None)
  Receive Date: 20101227
  Receipt Date: 20101220
  Transmission Date: 20110411
  Serious: Yes (Other)
  Sender: FDA-Public Use
  Company Number: BR-NOVOPROD-316659

PATIENT
  Age: 55 Year
  Sex: Female
  Weight: 68 kg

DRUGS (7)
  1. NOVOLIN N [Suspect]
     Indication: TYPE 2 DIABETES MELLITUS
     Dosage: 40 IU, QD
     Route: 058
     Dates: start: 20100416
  2. NOVOLIN N [Suspect]
     Dosage: 20 U, UNK
     Route: 058
  3. ENALAPRIL MALEATE [Concomitant]
     Dosage: 40 MG, QD
     Route: 048
     Dates: start: 19950101
  4. ATENOLOL [Concomitant]
     Indication: HYPERTENSION
     Dosage: 50 MG, QD
     Dates: start: 20080101
  5. LEVOTHYROXINE SODIUM [Concomitant]
     Indication: HYPOTHYROIDISM
     Dosage: 50 MG, QD
     Route: 048
  6. BETAMETHASONE DIPROPIONATE [Concomitant]
     Indication: HYPERSENSITIVITY
     Route: 030
  7. VACCINES [Concomitant]
     Indication: HYPERSENSITIVITY

REACTIONS (10)
  - ALOPECIA [None]
  - ASTHENIA [None]
  - CONFUSIONAL STATE [None]
  - DYSPNOEA [None]
  - HYPERSENSITIVITY [None]
  - RASH [None]
  - SPEECH DISORDER [None]
  - SYNCOPE [None]
  - TACHYCARDIA [None]
  - TREMOR [None]
